FAERS Safety Report 8500929-9 (Version None)
Quarter: 2012Q3

REPORT INFORMATION
  Report Type: 
  Country: None (occurrence: None)
  Receive Date: 20120710
  Receipt Date: 20120706
  Transmission Date: 20120928
  Serious: Yes (Hospitalization)
  Sender: FDA-Public Use
  Company Number: PHEH2012US012360

PATIENT
  Sex: Male

DRUGS (1)
  1. GILENYA [Suspect]
     Dosage: UNK UKN, UNK
     Route: 048

REACTIONS (5)
  - VERTIGO [None]
  - PERONEAL NERVE PALSY [None]
  - LOSS OF CONTROL OF LEGS [None]
  - FATIGUE [None]
  - TREMOR [None]
